FAERS Safety Report 15878540 (Version 2)
Quarter: 2019Q1

REPORT INFORMATION
  Report Type: Spontaneous
  Country: US (occurrence: US)
  Receive Date: 20190128
  Receipt Date: 20190324
  Transmission Date: 20190417
  Serious: Yes (Other)
  Sender: FDA-Public Use
  Company Number: PHEH2019US003534

PATIENT
  Sex: Male

DRUGS (1)
  1. TOBREX [Suspect]
     Active Substance: TOBRAMYCIN
     Indication: BLEPHARITIS
     Route: 047

REACTIONS (3)
  - Vision blurred [Recovering/Resolving]
  - Photophobia [Recovering/Resolving]
  - Punctate keratitis [Recovering/Resolving]
